FAERS Safety Report 7056472-X (Version None)
Quarter: 2010Q4

REPORT INFORMATION
  Report Type: 
  Country: None (occurrence: None)
  Receive Date: 20101021
  Receipt Date: 20101008
  Transmission Date: 20110411
  Serious: Yes (Other)
  Sender: FDA-Public Use
  Company Number: JP-GENENTECH-304387

PATIENT
  Age: 78 Year
  Sex: Male
  Weight: 62 kg

DRUGS (6)
  1. RANIBIZUMAB [Suspect]
     Indication: MACULAR DEGENERATION
     Dosage: 0.05 ML, UNK
     Route: 031
     Dates: start: 20090318
  2. VISUDYNE [Concomitant]
     Indication: PRODUCT USED FOR UNKNOWN INDICATION
     Dosage: UNK
     Dates: end: 20090101
  3. VISUDYNE [Concomitant]
     Dosage: UNK
     Dates: start: 20080301
  4. LEVOFLOXACIN [Concomitant]
     Indication: PRODUCT USED FOR UNKNOWN INDICATION
  5. ADALAT [Concomitant]
     Indication: PRODUCT USED FOR UNKNOWN INDICATION
  6. NIFLAN [Concomitant]
     Indication: PRODUCT USED FOR UNKNOWN INDICATION
     Dosage: UNK
     Dates: start: 20090801, end: 20090801

REACTIONS (2)
  - PNEUMONIA [None]
  - VITREOUS HAEMORRHAGE [None]
